FAERS Safety Report 5097060-4 (Version None)
Quarter: 2006Q3

REPORT INFORMATION
  Report Type: 
  Country: None (occurrence: None)
  Receive Date: 20060901
  Receipt Date: 20060815
  Transmission Date: 20061208
  Serious: Yes (Hospitalization, Other)
  Sender: FDA-Public Use
  Company Number: US200608002535

PATIENT
  Age: 52 Year
  Sex: Male
  Weight: 138.8 kg

DRUGS (6)
  1. ZYPREXA [Suspect]
     Indication: STRESS
     Dosage: 5 MG
     Dates: start: 19990201, end: 20051001
  2. WELLBUTRIN [Concomitant]
  3. PROZAC [Concomitant]
  4. REMERON [Concomitant]
  5. TENORMIN /NEZ/ (ATENOLOL) [Concomitant]
  6. INDERAL [Concomitant]

REACTIONS (2)
  - DIABETES MELLITUS [None]
  - MYOCARDIAL INFARCTION [None]
